FAERS Safety Report 5151002-1 (Version None)
Quarter: 2006Q4

REPORT INFORMATION
  Report Type: 
  Country: None (occurrence: None)
  Receive Date: 20061108
  Receipt Date: 20061025
  Transmission Date: 20070319
  Serious: Yes (Hospitalization)
  Sender: FDA-Public Use
  Company Number: 2006022091

PATIENT
  Age: 45 Year
  Sex: Male
  Weight: 72 kg

DRUGS (13)
  1. SUTENT [Suspect]
     Indication: RENAL CELL CARCINOMA STAGE UNSPECIFIED
     Dosage: SEE IMAGE, INTERVAL
     Route: 042
     Dates: start: 20051226, end: 20060122
  2. SUTENT [Suspect]
     Indication: RENAL CELL CARCINOMA STAGE UNSPECIFIED
     Dosage: SEE IMAGE, INTERVAL
     Route: 042
     Dates: start: 20060206
  3. FLUCONAZOLE [Concomitant]
  4. KETOPROFEN [Concomitant]
  5. ACETAMINOPHEN [Concomitant]
  6. DURAGESIC-100 [Concomitant]
  7. OXYCODONE HCL [Concomitant]
  8. PROPOFAN (CAFFEINE, CARBASALATE CALCIUM, CHLORPHENAMINE MALEATE, DEXTR [Concomitant]
  9. METHYLPREDNISOLONE [Concomitant]
  10. TRAMADOL HCL [Concomitant]
  11. ALLOPURINOL [Concomitant]
  12. ACTIQ (SUGAR-FREE) [Concomitant]
  13. OMEPRAZOLE [Concomitant]

REACTIONS (4)
  - DYSPNOEA [None]
  - PAIN [None]
  - PERICARDIAL EFFUSION [None]
  - PLEURAL EFFUSION [None]
